FAERS Safety Report 8936887 (Version 2)
Quarter: 2012Q4

REPORT INFORMATION
  Report Type: 
  Country: IN (occurrence: IN)
  Receive Date: 20121130
  Receipt Date: 20121203
  Transmission Date: 20130627
  Serious: Yes (Hospitalization)
  Sender: FDA-Public Use
  Company Number: PHHY2012IN109383

PATIENT

DRUGS (4)
  1. ISONIAZID [Suspect]
     Indication: DISSEMINATED TUBERCULOSIS
  2. RIFAMPICIN [Suspect]
     Indication: DISSEMINATED TUBERCULOSIS
  3. ETHAMBUTOL [Suspect]
     Indication: DISSEMINATED TUBERCULOSIS
  4. PYRAZINAMIDE [Suspect]
     Indication: DISSEMINATED TUBERCULOSIS

REACTIONS (6)
  - Bronchospasm paradoxical [Recovered/Resolved]
  - Cough [Recovered/Resolved]
  - Dyspnoea [Recovered/Resolved]
  - Pyrexia [Recovered/Resolved]
  - Hypoxia [Recovered/Resolved]
  - Respiratory alkalosis [Recovered/Resolved]
